FAERS Safety Report 20725440 (Version 1)
Quarter: 2022Q2

REPORT INFORMATION
  Report Type: Spontaneous
  Country: CN (occurrence: CN)
  Receive Date: 20220419
  Receipt Date: 20220419
  Transmission Date: 20220721
  Serious: Yes (Hospitalization)
  Sender: FDA-Public Use
  Company Number: CN-BAXTER-2022BAX008467

PATIENT
  Age: 10 Year
  Sex: Female

DRUGS (7)
  1. CYCLOPHOSPHAMIDE [Suspect]
     Active Substance: CYCLOPHOSPHAMIDE
     Indication: Lymphoma
     Dosage: 4:1 GLUCOSE AND SODIUM CHLORIDE SOLUTION (250 ML) + CYCLOPHOSPHAMIDE (0.235 G)
     Route: 041
     Dates: start: 20220309, end: 20220313
  2. DEXTROSE\SODIUM CHLORIDE [Suspect]
     Active Substance: DEXTROSE\SODIUM CHLORIDE
     Indication: Medication dilution
     Dosage: 4:1 GLUCOSE AND SODIUM CHLORIDE SOLUTION (250 ML) + CYCLOPHOSPHAMIDE (0.235 G)
     Route: 041
     Dates: start: 20220309, end: 20220313
  3. DEXTROSE\SODIUM CHLORIDE [Suspect]
     Active Substance: DEXTROSE\SODIUM CHLORIDE
     Dosage: 4:1 GLUCOSE AND SODIUM CHLORIDE SOLUTION (50 ML) + VINDESINE (3.51 MG)
     Route: 041
     Dates: start: 20220309, end: 20220309
  4. DEXTROSE\SODIUM CHLORIDE [Suspect]
     Active Substance: DEXTROSE\SODIUM CHLORIDE
     Dosage: 4:1 GLUCOSE AND SODIUM CHLORIDE SOLUTION (4000 ML) + EPIRUBICIN (29.4 MG)
     Route: 041
     Dates: start: 20220312, end: 20220313
  5. DEXTROSE\SODIUM CHLORIDE [Suspect]
     Active Substance: DEXTROSE\SODIUM CHLORIDE
     Dosage: 4:1 GLUCOSE AND SODIUM CHLORIDE SOLUTION (4000 ML) + METHOTREXATE (6.18 G) FOR 24 HOURS
     Route: 041
     Dates: start: 20220309, end: 20220309
  6. EPIRUBICIN [Suspect]
     Active Substance: EPIRUBICIN
     Indication: Lymphoma
     Dosage: 4:1 GLUCOSE AND SODIUM CHLORIDE SOLUTION (4000 ML) + EPIRUBICIN (29.4 MG)
     Route: 041
     Dates: start: 20220312, end: 20220313
  7. METHOTREXATE [Suspect]
     Active Substance: METHOTREXATE
     Indication: Lymphoma
     Dosage: 4:1 GLUCOSE AND SODIUM CHLORIDE SOLUTION (4000 ML) + METHOTREXATE (6.18 G) FOR 24 HOURS
     Route: 041
     Dates: start: 20220309, end: 20220309

REACTIONS (1)
  - Myelosuppression [Recovering/Resolving]

NARRATIVE: CASE EVENT DATE: 20220321
